FAERS Safety Report 18088610 (Version 1)
Quarter: 2020Q3

REPORT INFORMATION
  Report Type: Spontaneous
  Country: FR (occurrence: FR)
  Receive Date: 20200729
  Receipt Date: 20200729
  Transmission Date: 20201103
  Serious: Yes (Hospitalization)
  Sender: FDA-Public Use
  Company Number: FR-ANIPHARMA-2020-FR-000194

PATIENT
  Age: 84 Year
  Sex: Female

DRUGS (10)
  1. LEVOTHYROX [Suspect]
     Active Substance: LEVOTHYROXINE
     Dosage: 300 UG/INHAL ONCE
     Route: 048
     Dates: start: 20200703, end: 20200703
  2. CANDESARTAN CILEXETIL. [Suspect]
     Active Substance: CANDESARTAN CILEXETIL
     Indication: PRODUCT USED FOR UNKNOWN INDICATION
     Dosage: 4 DF ONCE
     Route: 048
     Dates: start: 20200703, end: 20200703
  3. OMEPRAZOLE. [Suspect]
     Active Substance: OMEPRAZOLE
     Dosage: 80 MG ONCE
     Route: 048
     Dates: start: 20200703, end: 20200703
  4. RIVOTRIL [Suspect]
     Active Substance: CLONAZEPAM
     Dosage: 2 DF ONCE
     Route: 048
     Dates: start: 20200703, end: 20200703
  5. ACEBUTOLOL [Suspect]
     Active Substance: ACEBUTOLOL
     Dosage: 200 MG ONCE
     Route: 048
     Dates: start: 20200703, end: 20200703
  6. XARELTO [Suspect]
     Active Substance: RIVAROXABAN
     Dosage: 80 MG ONCE
     Route: 048
     Dates: start: 20200703, end: 20200703
  7. LERCAN [Suspect]
     Active Substance: LERCANIDIPINE
     Dosage: 6 DF ONCE
     Route: 048
     Dates: start: 20200703, end: 20200703
  8. AMIODARONE [Suspect]
     Active Substance: AMIODARONE
     Dosage: 300 MG ONCE
     Route: 048
     Dates: start: 20200703, end: 20200703
  9. LYSANXIA [Suspect]
     Active Substance: PRAZEPAM
     Route: 048
     Dates: start: 20200703, end: 20200703
  10. PARACETAMOL [Suspect]
     Active Substance: ACETAMINOPHEN
     Dosage: UNSPECIFIED
     Route: 048
     Dates: start: 20200703, end: 20200703

REACTIONS (3)
  - Disturbance in attention [Recovered/Resolved]
  - Prothrombin time shortened [Recovering/Resolving]
  - Hypotension [Recovered/Resolved]

NARRATIVE: CASE EVENT DATE: 20200703
